FAERS Safety Report 20084620 (Version 1)
Quarter: 2021Q4

REPORT INFORMATION
  Report Type: Spontaneous
  Country: CA (occurrence: CA)
  Receive Date: 20211118
  Receipt Date: 20211118
  Transmission Date: 20220304
  Serious: Yes (Other)
  Sender: FDA-Public Use
  Company Number: None

PATIENT
  Age: 113 Month
  Sex: Male

DRUGS (3)
  1. TACROLIMUS [Suspect]
     Active Substance: TACROLIMUS
     Indication: Liver transplant
  2. CISPLATIN [Concomitant]
     Active Substance: CISPLATIN
     Indication: Hepatoblastoma
  3. VINCRISTINE [Concomitant]
     Active Substance: VINCRISTINE
     Indication: Hepatoblastoma

REACTIONS (1)
  - Glomerular filtration rate decreased [Unknown]
